FAERS Safety Report 6101092-4 (Version None)
Quarter: 2009Q1

REPORT INFORMATION
  Report Type: 
  Country: None (occurrence: None)
  Receive Date: 20090227
  Receipt Date: 20090219
  Transmission Date: 20090719
  Serious: Yes (Hospitalization)
  Sender: FDA-Public Use
  Company Number: 2008PV037200

PATIENT
  Age: 56 Year
  Sex: Male

DRUGS (9)
  1. SYMLIN [Suspect]
     Indication: TYPE 2 DIABETES MELLITUS
     Dosage: SC; SC
     Route: 058
     Dates: start: 20080401, end: 20081001
  2. SYMLIN [Suspect]
     Indication: TYPE 2 DIABETES MELLITUS
     Dosage: SC; SC
     Route: 058
     Dates: start: 20081101
  3. METFORMIN HCL [Concomitant]
  4. NOVOLOG [Concomitant]
  5. QUINAPRIL [Concomitant]
  6. VERAPAMIL [Concomitant]
  7. METOPROLOL [Concomitant]
  8. HYDROCHLOROTHIAZIDE [Concomitant]
  9. LIPITOR [Concomitant]

REACTIONS (2)
  - BLOOD GLUCOSE INCREASED [None]
  - PANCREATITIS [None]
